FAERS Safety Report 9501675 (Version 1)
Quarter: 2013Q3

REPORT INFORMATION
  Report Type: Report from Study
  Country: CA (occurrence: CA)
  Receive Date: 20130905
  Receipt Date: 20130905
  Transmission Date: 20140515
  Serious: Yes (Hospitalization, Other)
  Sender: FDA-Public Use
  Company Number: CA-ABBOTT-13P-028-1142069-00

PATIENT
  Age: 92 Year
  Sex: Male

DRUGS (3)
  1. LUPRON DEPOT [Suspect]
     Indication: PROSTATE CANCER
     Route: 030
     Dates: start: 20120509
  2. HYDROCHLOROTHIAZIDE [Suspect]
     Indication: PRODUCT USED FOR UNKNOWN INDICATION
  3. FLOMAX [Suspect]
     Indication: PRODUCT USED FOR UNKNOWN INDICATION

REACTIONS (15)
  - Pleural effusion [Recovered/Resolved]
  - Dyspnoea [Recovered/Resolved]
  - Cardiac failure congestive [Recovered/Resolved]
  - Renal failure acute [Unknown]
  - Ejection fraction abnormal [Unknown]
  - Aortic stenosis [Unknown]
  - Cardiomegaly [Unknown]
  - Lung disorder [Unknown]
  - Atelectasis [Unknown]
  - Pulmonary oedema [Unknown]
  - Lung consolidation [Unknown]
  - Pulmonary oedema [Unknown]
  - Hypotension [Unknown]
  - Asthenia [Unknown]
  - Lung disorder [Unknown]
